FAERS Safety Report 5200345-1 (Version None)
Quarter: 2006Q4

REPORT INFORMATION
  Report Type: 
  Country: None (occurrence: None)
  Receive Date: 20061016
  Receipt Date: 20060718
  Transmission Date: 20070319
  Serious: No
  Sender: FDA-Public Use
  Company Number: 2006SP002734

PATIENT
  Age: 62 Year
  Sex: Female
  Weight: 69.8539 kg

DRUGS (9)
  1. LUNESTA [Suspect]
     Indication: INSOMNIA
     Dosage: 2 MG; PRN;ORAL; 2 MG;HS;ORAL
     Route: 048
     Dates: start: 20060401, end: 20060601
  2. LUNESTA [Suspect]
     Indication: INSOMNIA
     Dosage: 2 MG; PRN;ORAL; 2 MG;HS;ORAL
     Route: 048
     Dates: start: 20060606, end: 20060717
  3. HYDROCODONE [Suspect]
     Indication: BACK PAIN
     Dosage: ORAL
     Route: 048
  4. VALSARTAN [Concomitant]
  5. DYRENIUM [Concomitant]
  6. ALLEGRA [Concomitant]
  7. PREVACID [Concomitant]
  8. FLONASE [Concomitant]
  9. MIACALCIN [Concomitant]

REACTIONS (2)
  - PARADOXICAL DRUG REACTION [None]
  - VIRAL INFECTION [None]
